FAERS Safety Report 22655471 (Version 1)
Quarter: 2023Q2

REPORT INFORMATION
  Report Type: Report from Study
  Country: IN (occurrence: IN)
  Receive Date: 20230629
  Receipt Date: 20230629
  Transmission Date: 20230722
  Serious: Yes (Death, Hospitalization)
  Sender: FDA-Public Use
  Company Number: IN-MYLANLABS-2023M1069667

PATIENT
  Age: 13 Year
  Sex: Male

DRUGS (13)
  1. METHOTREXATE [Suspect]
     Active Substance: METHOTREXATE
     Indication: Prophylactic chemotherapy
     Dosage: UNK (PHASE-I INDUCTION: ADMINISTERED ON DAYS 8, 15, 22 AND DAY 29..
     Route: 037
  2. CYTARABINE [Suspect]
     Active Substance: CYTARABINE
     Indication: Precursor B-lymphoblastic lymphoma stage I
     Dosage: 75 MILLIGRAM/SQ. METER, (PHASE-II INDUCTION: ADMINISTERED ON DAYS 38-41..
     Route: 065
  3. METHOTREXATE [Suspect]
     Active Substance: METHOTREXATE
     Indication: Prophylactic chemotherapy
     Dosage: 3000 MILLIGRAM/SQ. METER (INTERIM MAINTENANCE PHASE-M: 24H CONTINUOUS..
     Route: 042
  4. DOXORUBICIN [Suspect]
     Active Substance: DOXORUBICIN
     Indication: Precursor B-lymphoblastic lymphoma stage I
     Dosage: 30 MILLIGRAM/SQ. METER (RE-INTENSIFICATION PHASE: ADMINISTERED ON DAYS 8, 15, 22, 29)
     Route: 065
  5. PREDNISOLONE [Suspect]
     Active Substance: PREDNISOLONE
     Indication: Precursor B-lymphoblastic lymphoma stage I
     Dosage: 60 MILLIGRAM/SQ. METER (PHASE-I INDUCTION: ADMINISTERED ON DAYS 1-28)
     Route: 065
  6. VINCRISTINE [Suspect]
     Active Substance: VINCRISTINE
     Indication: Precursor B-lymphoblastic lymphoma stage I
     Dosage: 1.5 MILLIGRAM/SQ. METER (PHASE-I INDUCTION: ADMINISTERED ON DAYS 8, 15, 22, 29..
     Route: 065
  7. DAUNORUBICIN [Suspect]
     Active Substance: DAUNORUBICIN
     Indication: Precursor B-lymphoblastic lymphoma stage I
     Dosage: 30 MILLIGRAM/SQ. METER (PHASE-I INDUCTION: ADMINISTERED ON DAYS 8, 15, 22, 29)
     Route: 065
  8. ASPARAGINASE [Suspect]
     Active Substance: ASPARAGINASE
     Indication: Precursor B-lymphoblastic lymphoma stage I
     Dosage: UNK (DOSE: 10,000 IU/M*2; INITIALLY ADMINISTERED AS A PART..
     Route: 065
  9. MERCAPTOPURINE [Suspect]
     Active Substance: MERCAPTOPURINE
     Indication: Precursor B-lymphoblastic lymphoma stage I
     Dosage: 50 MILLIGRAM/SQ. METER, QD (PHASE-II INDUCTION: ADMINISTERED ON DAYS 36-63)
     Route: 065
  10. MERCAPTOPURINE [Suspect]
     Active Substance: MERCAPTOPURINE
     Dosage: 25 MILLIGRAM/SQ. METER (INTERIM MAINTENANCE PHASE-M: ADMINISTERED ON DAYS 1-56)
     Route: 065
  11. CYCLOPHOSPHAMIDE [Suspect]
     Active Substance: CYCLOPHOSPHAMIDE
     Indication: Precursor B-lymphoblastic lymphoma stage I
     Dosage: 1000 MILLIGRAM/SQ. METER (PHASE-II INDUCTION: ADMINISTERED ON DAYS 36 AND 63..
     Route: 065
  12. DEXAMETHASONE [Suspect]
     Active Substance: DEXAMETHASONE
     Indication: Precursor B-lymphoblastic lymphoma stage I
     Dosage: 8 MILLIGRAM/SQ. METER, QD (RE-INTENSIFICATION PHASE: ADMINISTERED ON DAYS 1-21..
     Route: 065
  13. THIOGUANINE [Suspect]
     Active Substance: THIOGUANINE
     Indication: Precursor B-lymphoblastic lymphoma stage I
     Dosage: 40 MILLIGRAM/SQ. METER, QD (RE-INTENSIFICATION PHASE: ADMINISTERED ON DAYS 30-48)
     Route: 065

REACTIONS (2)
  - Sepsis [Fatal]
  - Transient ischaemic attack [Unknown]
